FAERS Safety Report 16661872 (Version 3)
Quarter: 2019Q4

REPORT INFORMATION
  Report Type: Spontaneous
  Country: US (occurrence: US)
  Receive Date: 20190802
  Receipt Date: 20191122
  Transmission Date: 20200122
  Serious: Yes (Death, Hospitalization, Other)
  Sender: FDA-Public Use
  Company Number: US-009507513-1907USA014862

PATIENT
  Age: 67 Year
  Sex: Male
  Weight: 87.62 kg

DRUGS (14)
  1. SINEMET [Suspect]
     Active Substance: CARBIDOPA\LEVODOPA
     Dosage: 2 TABLETS, 1X/DAY AT 6 AM
     Route: 048
     Dates: start: 201906, end: 2019
  2. SINEMET [Suspect]
     Active Substance: CARBIDOPA\LEVODOPA
     Dosage: 1 TABLET 3X/DAY AT 10 AM, 2PM AND 10 PM
     Route: 048
     Dates: start: 201906, end: 2019
  3. FINASTERIDE. [Concomitant]
     Active Substance: FINASTERIDE
     Dosage: UNK
     Route: 048
  4. AMANTADINE. [Suspect]
     Active Substance: AMANTADINE HYDROCHLORIDE
     Indication: DYSKINESIA
     Dosage: 137 MILLIGRAM 1X/DAY NIGHTLY
     Route: 048
     Dates: start: 20180327
  5. METHENAMINE HIPPURATE. [Concomitant]
     Active Substance: METHENAMINE HIPPURATE
     Dosage: UNK
     Route: 048
  6. RASAGILINE. [Concomitant]
     Active Substance: RASAGILINE
     Dosage: UNK
     Route: 048
  7. TAMSULOSIN HYDROCHLORIDE. [Concomitant]
     Active Substance: TAMSULOSIN HYDROCHLORIDE
     Dosage: UNK
     Route: 048
  8. SINEMET CR [Suspect]
     Active Substance: CARBIDOPA\LEVODOPA
     Dosage: 2 TABLETS 5X/DAY 6 AM, 10 AM, 2 PM, 6 PM, AND 10 PM
     Route: 048
     Dates: start: 201906, end: 2019
  9. SINEMET [Suspect]
     Active Substance: CARBIDOPA\LEVODOPA
     Indication: PARKINSON^S DISEASE
     Dosage: UNK
     Route: 048
     Dates: end: 201906
  10. SINEMET CR [Suspect]
     Active Substance: CARBIDOPA\LEVODOPA
     Indication: PARKINSON^S DISEASE
     Dosage: UNK
     Route: 048
     Dates: end: 201906
  11. IBUPROFEN. [Concomitant]
     Active Substance: IBUPROFEN
     Dosage: UNK
     Route: 048
  12. CRANBERRY. [Concomitant]
     Active Substance: CRANBERRY
     Dosage: UNK
     Route: 048
  13. AMANTADINE. [Suspect]
     Active Substance: AMANTADINE HYDROCHLORIDE
     Dosage: 274 MILLIGRAM 1 X/DAY NIGHTLY
     Route: 048
     Dates: end: 201908
  14. CLONAZEPAM. [Concomitant]
     Active Substance: CLONAZEPAM
     Dosage: UNK
     Route: 048

REACTIONS (6)
  - Joint injury [Unknown]
  - Confusional state [Not Recovered/Not Resolved]
  - Death [Fatal]
  - Urosepsis [Unknown]
  - Fall [Not Recovered/Not Resolved]
  - Orthostatic hypotension [Not Recovered/Not Resolved]

NARRATIVE: CASE EVENT DATE: 2019
